FAERS Safety Report 7073197-5 (Version None)
Quarter: 2010Q4

REPORT INFORMATION
  Report Type: 
  Country: None (occurrence: None)
  Receive Date: 20101029
  Receipt Date: 20100630
  Transmission Date: 20110411
  Serious: No
  Sender: FDA-Public Use
  Company Number: A0858702A

PATIENT
  Sex: Male

DRUGS (5)
  1. ADVAIR DISKUS 100/50 [Suspect]
     Indication: CHRONIC OBSTRUCTIVE PULMONARY DISEASE
     Dosage: 2PUFF TWICE PER DAY
     Route: 055
     Dates: start: 20080101
  2. VENTOLIN [Suspect]
     Indication: BRONCHOSPASM
     Route: 055
  3. MEDICATION FOR HIGH BLOOD PRESSURE [Concomitant]
     Dosage: 5MG PER DAY
  4. UNKNOWN DRUG FOR ANXIETY [Concomitant]
  5. UNKNOWN INSOMNIA MEDICATION [Concomitant]

REACTIONS (2)
  - BACK PAIN [None]
  - BLOOD PRESSURE INCREASED [None]
